FAERS Safety Report 24401203 (Version 1)
Quarter: 2024Q4

REPORT INFORMATION
  Report Type: Spontaneous
  Country: US (occurrence: US)
  Receive Date: 20241007
  Receipt Date: 20241007
  Transmission Date: 20250115
  Serious: Yes (Hospitalization, Other)
  Sender: JOHNSON AND JOHNSON
  Company Number: US-JNJFOC-20240967746

PATIENT

DRUGS (3)
  1. TALVEY [Suspect]
     Active Substance: TALQUETAMAB-TGVS
     Indication: Product used for unknown indication
     Dosage: FOR A YEAR
     Route: 065
  2. TALVEY [Suspect]
     Active Substance: TALQUETAMAB-TGVS
     Dosage: FOR A YEAR
     Route: 065
  3. TALVEY [Suspect]
     Active Substance: TALQUETAMAB-TGVS
     Route: 065

REACTIONS (9)
  - Choking [Recovering/Resolving]
  - Cytokine release syndrome [Recovered/Resolved]
  - Alopecia [Recovered/Resolved]
  - Madarosis [Recovered/Resolved]
  - Onychomadesis [Recovered/Resolved]
  - Skin exfoliation [Recovered/Resolved]
  - Ageusia [Recovering/Resolving]
  - Rash [Recovered/Resolved]
  - Off label use [Unknown]
